FAERS Safety Report 9672457 (Version 1)
Quarter: 2013Q4

REPORT INFORMATION
  Report Type: Spontaneous
  Country: US (occurrence: US)
  Receive Date: 20131106
  Receipt Date: 20131106
  Transmission Date: 20140711
  Serious: Yes (Other)
  Sender: FDA-Public Use
  Company Number: US-PFIZER INC-2013313725

PATIENT
  Age: 40 Year
  Sex: Female
  Weight: 63.49 kg

DRUGS (5)
  1. NEURONTIN [Suspect]
     Indication: NERVE INJURY
     Dosage: 600 MG, 3X/DAY
     Dates: start: 1993
  2. TOPAMAX [Suspect]
     Indication: GRAND MAL CONVULSION
     Dosage: 25 MG, 1X/DAY
  3. PROZAC [Concomitant]
     Indication: PANIC ATTACK
     Dosage: 10 MG, UNK
  4. PROZAC [Concomitant]
     Indication: DEPRESSION
  5. NAPROXEN [Concomitant]
     Indication: SPINAL DEFORMITY
     Dosage: 500 MG, UNK

REACTIONS (10)
  - Off label use [Unknown]
  - Grand mal convulsion [Unknown]
  - Brain oedema [Unknown]
  - Headache [Unknown]
  - Head injury [Unknown]
  - Nerve injury [Unknown]
  - Hypoaesthesia [Unknown]
  - Nervous system disorder [Unknown]
  - Pain [Unknown]
  - Drug ineffective for unapproved indication [Unknown]
